FAERS Safety Report 24387485 (Version 1)
Quarter: 2024Q4

REPORT INFORMATION
  Report Type: Spontaneous
  Country: US (occurrence: None)
  Receive Date: 20241001
  Receipt Date: 20241001
  Transmission Date: 20250114
  Serious: Yes (Other)
  Sender: Public
  Company Number: None

PATIENT
  Age: 77 Year
  Sex: Male

DRUGS (1)
  1. POMALYST [Suspect]
     Active Substance: POMALIDOMIDE
     Indication: Plasma cell myeloma
     Dosage: 3MG QD ORAL
     Route: 048
     Dates: start: 20230815, end: 20241001

REACTIONS (6)
  - Rash [None]
  - Pruritus [None]
  - Headache [None]
  - Joint swelling [None]
  - Pain [None]
  - Feeling hot [None]

NARRATIVE: CASE EVENT DATE: 20241001
